FAERS Safety Report 15261567 (Version 1)
Quarter: 2018Q3

REPORT INFORMATION
  Report Type: Spontaneous
  Country: US (occurrence: US)
  Receive Date: 20180719
  Receipt Date: 20180719
  Transmission Date: 20181010
  Serious: Yes (Other)
  Sender: FDA-Public Use
  Company Number: None

PATIENT
  Age: 58 Year
  Sex: Male
  Weight: 109.32 kg

DRUGS (1)
  1. BIKTARVY [Suspect]
     Active Substance: BICTEGRAVIR SODIUM\EMTRICITABINE\TENOFOVIR ALAFENAMIDE FUMARATE
     Indication: HIV TEST POSITIVE
     Route: 048
     Dates: start: 20180714, end: 2018

REACTIONS (6)
  - Diarrhoea [None]
  - Pyrexia [None]
  - Vomiting [None]
  - Weight decreased [None]
  - Nausea [None]
  - Palpitations [None]

NARRATIVE: CASE EVENT DATE: 20180714
